FAERS Safety Report 25949934 (Version 1)
Quarter: 2025Q4

REPORT INFORMATION
  Report Type: Report from Study
  Country: EU (occurrence: EU)
  Receive Date: 20251022
  Receipt Date: 20251022
  Transmission Date: 20260117
  Serious: Yes (Death, Hospitalization)
  Sender: SCIECURE PHARMA
  Company Number: EU-Sciecure Pharma Inc.-2187083

PATIENT
  Age: 26 Year
  Sex: Female

DRUGS (6)
  1. PAROXETINE HYDROCHLORIDE [Suspect]
     Active Substance: PAROXETINE HYDROCHLORIDE
  2. AGOMELATINE [Suspect]
     Active Substance: AGOMELATINE
  3. IBUPROFEN [Suspect]
     Active Substance: IBUPROFEN
  4. CAFFEINE [Suspect]
     Active Substance: CAFFEINE
  5. ASPIRIN [Suspect]
     Active Substance: ASPIRIN
  6. ACETAMINOPHEN [Suspect]
     Active Substance: ACETAMINOPHEN

REACTIONS (8)
  - Serotonin syndrome [Fatal]
  - Necrosis [Unknown]
  - Clonus [Unknown]
  - Drug level increased [Fatal]
  - Suicide attempt [Fatal]
  - Intentional overdose [Fatal]
  - Toxicity to various agents [Fatal]
  - Respiratory failure [Fatal]
